FAERS Safety Report 4864924-3 (Version None)
Quarter: 2005Q4

REPORT INFORMATION
  Report Type: 
  Country: None (occurrence: None)
  Receive Date: 20051201
  Receipt Date: 20050802
  Transmission Date: 20060501
  Serious: No
  Sender: FDA-Public Use
  Company Number: 2005PV000727

PATIENT
  Age: 84 Year
  Sex: Female
  Weight: 95.9358 kg

DRUGS (13)
  1. BYETTA [Suspect]
     Indication: DIABETES MELLITUS NON-INSULIN-DEPENDENT
     Dosage: 5 MCG; BID; SC
     Route: 058
     Dates: start: 20050726
  2. PLAVIX [Concomitant]
  3. DIOVANE [Concomitant]
  4. FOLEX [Concomitant]
  5. SYNTHROID [Concomitant]
  6. ASPIRIN [Concomitant]
  7. AMARYL [Concomitant]
  8. MULTIVITAMIN [Concomitant]
  9. CALTRATE [Concomitant]
  10. LIPITOR [Concomitant]
  11. VITAMIN B COMPLEX CAP [Concomitant]
  12. LUTEINE [Concomitant]
  13. CORTISONE ACETATE TAB [Concomitant]

REACTIONS (11)
  - BLOOD CHOLESTEROL INCREASED [None]
  - BLOOD GLUCOSE DECREASED [None]
  - CONTUSION [None]
  - DECREASED APPETITE [None]
  - DIZZINESS [None]
  - HEPATIC ENZYME INCREASED [None]
  - HYPERHIDROSIS [None]
  - MALAISE [None]
  - NAUSEA [None]
  - PROTEIN URINE PRESENT [None]
  - TREMOR [None]
